FAERS Safety Report 13229926 (Version 3)
Quarter: 2021Q4

REPORT INFORMATION
  Report Type: Spontaneous
  Country: US (occurrence: US)
  Receive Date: 20170214
  Receipt Date: 20211007
  Transmission Date: 20220303
  Serious: No
  Sender: FDA-Public Use
  Company Number: US-PFIZER INC-2017059841

PATIENT
  Age: 81 Year
  Sex: Female

DRUGS (7)
  1. LYRICA [Suspect]
     Active Substance: PREGABALIN
     Indication: Fibromyalgia
     Dosage: 375 MG, UNK (75 MG 5 PILLS (1)/1 CAPSULE BY MOUTH IN MORNING AND 2 CAPSULES AT NOON AND 2 CAPSULES I
     Route: 048
  2. LYRICA [Suspect]
     Active Substance: PREGABALIN
     Dosage: 375 MG (1 CAPS BY MOUTH IN MORNING, 2 CAPS AT NOON AND 2 CAPS IN EVENING)
     Route: 048
  3. CRESTOR [Concomitant]
     Active Substance: ROSUVASTATIN CALCIUM
     Dosage: 10 MG, UNK (1)
  4. ESCITALOPRAM [Concomitant]
     Active Substance: ESCITALOPRAM OXALATE
     Indication: Anxiety
     Dosage: 20 MG, UNK (1)
  5. METOPROLOL [Concomitant]
     Active Substance: METOPROLOL
     Indication: Dyspnoea
     Dosage: 25 MG, UNK (1)
  6. ISOSORBIDE [Concomitant]
     Active Substance: ISOSORBIDE
     Indication: Dyspnoea
     Dosage: 60 MG, UNK (1)
  7. OMEPRAZOLE [Concomitant]
     Active Substance: OMEPRAZOLE
     Dosage: 20 MG, UNK (1)

REACTIONS (1)
  - Nasopharyngitis [Not Recovered/Not Resolved]
